FAERS Safety Report 21272969 (Version 4)
Quarter: 2022Q4

REPORT INFORMATION
  Report Type: Report from Study
  Country: US (occurrence: US)
  Receive Date: 20220831
  Receipt Date: 20221224
  Transmission Date: 20230113
  Serious: Yes (Other)
  Sender: FDA-Public Use
  Company Number: US-NOVARTISTESTPH-NVSC2022US195890

PATIENT
  Sex: Female

DRUGS (3)
  1. KISQALI FEMARA CO-PACK [Suspect]
     Active Substance: LETROZOLE\RIBOCICLIB
     Indication: Invasive ductal breast carcinoma
     Dosage: UNK
     Route: 065
  2. KISQALI FEMARA CO-PACK [Suspect]
     Active Substance: LETROZOLE\RIBOCICLIB
     Indication: Invasive ductal breast carcinoma
     Dosage: UNK
     Route: 065
  3. LETROZOLE [Concomitant]
     Active Substance: LETROZOLE
     Indication: Product used for unknown indication
     Dosage: UNK
     Route: 065

REACTIONS (4)
  - Invasive ductal breast carcinoma [Unknown]
  - Hot flush [Not Recovered/Not Resolved]
  - Neoplasm [Unknown]
  - Fatigue [Unknown]
